FAERS Safety Report 6729762-5 (Version None)
Quarter: 2010Q2

REPORT INFORMATION
  Report Type: 
  Country: None (occurrence: None)
  Receive Date: 20100513
  Receipt Date: 20100512
  Transmission Date: 20101027
  Serious: Yes (Other)
  Sender: FDA-Public Use
  Company Number: 2010SP023449

PATIENT
  Sex: Male
  Weight: 24 kg

DRUGS (4)
  1. DESLORATADINE [Suspect]
     Indication: SEASONAL ALLERGY
     Dosage: 5 ML;QPM;PO ; 5 ML;QPM;PO
     Route: 048
     Dates: start: 20100410, end: 20100419
  2. DESLORATADINE [Suspect]
     Indication: SEASONAL ALLERGY
     Dosage: 5 ML;QPM;PO ; 5 ML;QPM;PO
     Route: 048
     Dates: start: 20100421, end: 20100422
  3. CLAMOXYL [Concomitant]
  4. JOSACINE [Concomitant]

REACTIONS (6)
  - CRYING [None]
  - EYE PAIN [None]
  - HEADACHE [None]
  - MYOSITIS [None]
  - PRODUCTIVE COUGH [None]
  - PYREXIA [None]
